FAERS Safety Report 18552695 (Version 1)
Quarter: 2020Q4

REPORT INFORMATION
  Report Type: Other
  Country: US (occurrence: US)
  Receive Date: 20201127
  Receipt Date: 20201127
  Transmission Date: 20210114
  Serious: No
  Sender: FDA-Public Use
  Company Number: US-ROCHE-2355780

PATIENT
  Age: 48 Year
  Sex: Female
  Weight: 69.46 kg

DRUGS (3)
  1. OCREVUS [Suspect]
     Active Substance: OCRELIZUMAB
     Indication: RELAPSING-REMITTING MULTIPLE SCLEROSIS
     Route: 065
     Dates: start: 20190531
  2. OCREVUS [Suspect]
     Active Substance: OCRELIZUMAB
     Dosage: DAY ONE, THEN 300 MG DAY 15
     Route: 042
  3. OCREVUS [Suspect]
     Active Substance: OCRELIZUMAB
     Route: 042

REACTIONS (2)
  - Fungal infection [Recovered/Resolved]
  - Upper respiratory tract congestion [Recovered/Resolved]

NARRATIVE: CASE EVENT DATE: 20190531
